FAERS Safety Report 20322106 (Version 1)
Quarter: 2022Q1

REPORT INFORMATION
  Report Type: Spontaneous
  Country: CN (occurrence: CN)
  Receive Date: 20220111
  Receipt Date: 20220111
  Transmission Date: 20220424
  Serious: Yes (Hospitalization, Other)
  Sender: FDA-Public Use
  Company Number: CN-PFIZER INC-202101883151

PATIENT
  Age: 72 Year
  Sex: Male
  Weight: 62 kg

DRUGS (2)
  1. ATORVASTATIN CALCIUM [Suspect]
     Active Substance: ATORVASTATIN CALCIUM
     Indication: Dyslipidaemia
     Dosage: 20 MG, 1X/DAY
     Route: 048
     Dates: start: 20210923, end: 20211215
  2. ASPIRIN [Suspect]
     Active Substance: ASPIRIN
     Indication: Antiplatelet therapy
     Dosage: 100 MG, 1X/DAY
     Route: 048
     Dates: start: 20210923, end: 20211210

REACTIONS (3)
  - Gastrointestinal haemorrhage [Recovering/Resolving]
  - Hepatic function abnormal [Recovering/Resolving]
  - Haemoglobin decreased [Unknown]

NARRATIVE: CASE EVENT DATE: 20211125
